FAERS Safety Report 6516778-7 (Version None)
Quarter: 2009Q4

REPORT INFORMATION
  Report Type: 
  Country: None (occurrence: None)
  Receive Date: 20091223
  Receipt Date: 20091211
  Transmission Date: 20100525
  Serious: Yes (Other)
  Sender: FDA-Public Use
  Company Number: CA-JNJFOC-20091205960

PATIENT
  Age: 54 Year
  Sex: Female

DRUGS (2)
  1. RALIVIA [Suspect]
     Indication: DRUG USE FOR UNKNOWN INDICATION
     Route: 048
  2. EFFEXOR XR [Concomitant]
     Route: 065

REACTIONS (3)
  - DEPRESSION [None]
  - FEELING ABNORMAL [None]
  - IMPAIRED WORK ABILITY [None]
